FAERS Safety Report 6077016-5 (Version None)
Quarter: 2009Q1

REPORT INFORMATION
  Report Type: 
  Country: None (occurrence: None)
  Receive Date: 20090213
  Receipt Date: 20090204
  Transmission Date: 20090719
  Serious: Yes (Hospitalization)
  Sender: FDA-Public Use
  Company Number: US-WYE-H08077409

PATIENT
  Age: 25 Year
  Sex: Female
  Weight: 55 kg

DRUGS (10)
  1. RAPAMUNE [Suspect]
     Indication: PROPHYLAXIS AGAINST TRANSPLANT REJECTION
     Dosage: 4 TO 6 MG DAILY
     Route: 048
     Dates: start: 20030101
  2. OMEPRAZOLE [Concomitant]
     Dosage: DOSE UNKNOWN
     Route: 065
  3. SODIUM BICARBONATE IN PLASTIC CONTAINER [Concomitant]
     Dosage: DOSE UNKNOWN
     Route: 065
  4. LACTULOSE [Concomitant]
     Dosage: DOSE UNKNOWN
     Route: 065
  5. LANTUS [Concomitant]
     Dosage: DOSE UNKNOWN
     Route: 065
  6. NOVOLOG [Concomitant]
     Dosage: DOSE UNKNOWN
     Route: 065
  7. CALCIUM CARBONATE [Concomitant]
     Dosage: DOSE UNKNOWN
     Route: 065
  8. COLACE [Concomitant]
     Dosage: DOSE UNKNOWN
     Route: 065
  9. YASMIN [Interacting]
     Indication: CONTRACEPTION
     Dosage: DOSE UNKNOWN
     Route: 048
  10. MYCOPHENOLATE MOFETIL [Concomitant]
     Dosage: DOSE UNKNOWN
     Route: 065

REACTIONS (3)
  - DRUG INTERACTION [None]
  - IMMUNOSUPPRESSANT DRUG LEVEL DECREASED [None]
  - TRANSPLANT REJECTION [None]
